FAERS Safety Report 4904772-9 (Version None)
Quarter: 2006Q1

REPORT INFORMATION
  Report Type: 
  Country: None (occurrence: None)
  Receive Date: 20060208
  Receipt Date: 20051003
  Transmission Date: 20060701
  Serious: Yes (Other)
  Sender: FDA-Public Use
  Company Number: US-GLAXOSMITHKLINE-A0576728A

PATIENT
  Age: 50 Year
  Sex: Female

DRUGS (4)
  1. PAROXETINE HCL [Suspect]
     Indication: SYNCOPE
     Dosage: 40MG PER DAY
     Route: 048
     Dates: start: 20030901
  2. SYNTHROID [Concomitant]
  3. PREVACID [Concomitant]
  4. PROMETRIUM [Concomitant]

REACTIONS (5)
  - DIZZINESS [None]
  - DRUG WITHDRAWAL SYNDROME [None]
  - HALLUCINATION [None]
  - HOT FLUSH [None]
  - NAUSEA [None]
